FAERS Safety Report 17005088 (Version 1)
Quarter: 2019Q4

REPORT INFORMATION
  Report Type: Spontaneous
  Country: US (occurrence: US)
  Receive Date: 20190926
  Receipt Date: 20190926
  Transmission Date: 20200122
  Serious: Yes (Other)
  Sender: FDA-Public Use
  Company Number: None

PATIENT
  Age: 78 Year
  Sex: Male
  Weight: 71.67 kg

DRUGS (9)
  1. LANOXIN [Concomitant]
     Active Substance: DIGOXIN
  2. HYDRODIURIL [Concomitant]
     Active Substance: HYDROCHLOROTHIAZIDE
  3. DRONEDARONE [Suspect]
     Active Substance: DRONEDARONE
     Route: 048
     Dates: start: 20190906, end: 20190916
  4. CELEXA [Concomitant]
     Active Substance: CITALOPRAM HYDROBROMIDE
  5. CALCIUM [Concomitant]
     Active Substance: CALCIUM
  6. LIPTON [Concomitant]
  7. LISINOPRIL. [Concomitant]
     Active Substance: LISINOPRIL
  8. APRESOINE [Concomitant]
  9. XARELTO [Concomitant]
     Active Substance: RIVAROXABAN

REACTIONS (1)
  - Sudden hearing loss [None]

NARRATIVE: CASE EVENT DATE: 20190912
